FAERS Safety Report 5119583-1 (Version None)
Quarter: 2006Q3

REPORT INFORMATION
  Report Type: 
  Country: None (occurrence: None)
  Receive Date: 20060929
  Receipt Date: 20060830
  Transmission Date: 20061208
  Serious: Yes (Other)
  Sender: FDA-Public Use
  Company Number: 2006108418

PATIENT
  Age: 35 Year
  Sex: Male
  Weight: 108.8633 kg

DRUGS (2)
  1. BEXTRA [Suspect]
     Indication: BACK PAIN
     Dosage: 40 MG (20 MG, 2 IN 1 D)
     Dates: start: 20030801, end: 20050801
  2. BEXTRA [Suspect]
     Indication: MUSCLE SPASMS
     Dosage: 40 MG (20 MG, 2 IN 1 D)
     Dates: start: 20030801, end: 20050801

REACTIONS (2)
  - ASTHMA [None]
  - TOXIC EPIDERMAL NECROLYSIS [None]
